FAERS Safety Report 4773541-5 (Version None)
Quarter: 2005Q3

REPORT INFORMATION
  Report Type: 
  Country: None (occurrence: None)
  Receive Date: 20050920
  Receipt Date: 20041021
  Transmission Date: 20060218
  Serious: No
  Sender: FDA-Public Use
  Company Number: US-BRISTOL-MYERS SQUIBB COMPANY-12740080

PATIENT
  Age: 87 Year
  Sex: Female
  Weight: 72 kg

DRUGS (5)
  1. BUSPAR [Suspect]
     Indication: NERVOUSNESS
     Route: 048
  2. NEURONTIN [Concomitant]
  3. COZAAR [Concomitant]
  4. HYDROCHLOROTHIAZIDE [Concomitant]
  5. COLACE [Concomitant]

REACTIONS (2)
  - ANXIETY [None]
  - HEART RATE INCREASED [None]
